FAERS Safety Report 5159190-8 (Version None)
Quarter: 2006Q4

REPORT INFORMATION
  Report Type: 
  Country: None (occurrence: None)
  Receive Date: 20061120
  Receipt Date: 20061115
  Transmission Date: 20070319
  Serious: Yes (Life-Threatening)
  Sender: FDA-Public Use
  Company Number: TCI2006A05112

PATIENT
  Age: 80 Year
  Sex: Male

DRUGS (2)
  1. LEUPROLIDE ACETATE [Suspect]
     Indication: PROSTATE CANCER
     Dosage: 11.25 MG (11.25 MG, 1 IN 12 WK) SUBCUTANEOUS
     Route: 058
     Dates: start: 20051129
  2. CASODEX [Concomitant]

REACTIONS (9)
  - BLOOD CREATININE INCREASED [None]
  - BLOOD UREA INCREASED [None]
  - DIALYSIS [None]
  - DYSPNOEA [None]
  - FACE OEDEMA [None]
  - HYDRONEPHROSIS [None]
  - OEDEMA PERIPHERAL [None]
  - RENAL FAILURE [None]
  - TREMOR [None]
